FAERS Safety Report 4715877-X (Version None)
Quarter: 2005Q3

REPORT INFORMATION
  Report Type: 
  Country: None (occurrence: None)
  Receive Date: 20050718
  Receipt Date: 20050708
  Transmission Date: 20060218
  Serious: Yes (Death)
  Sender: FDA-Public Use
  Company Number: ES-ROCHE-410100

PATIENT
  Age: 31 Year
  Sex: Female
  Weight: 57 kg

DRUGS (2)
  1. XELODA [Suspect]
     Indication: BREAST CANCER
     Dosage: FORMULATION REPORTED AS COATED TABLETS
     Route: 048
     Dates: start: 20050420, end: 20050504
  2. VINORELBINE [Suspect]
     Indication: BREAST CANCER
     Route: 042
     Dates: start: 20050420, end: 20050504

REACTIONS (1)
  - HEPATIC NECROSIS [None]
